FAERS Safety Report 7455769-9 (Version None)
Quarter: 2011Q2

REPORT INFORMATION
  Report Type: 
  Country: None (occurrence: None)
  Receive Date: 20110503
  Receipt Date: 20110427
  Transmission Date: 20111010
  Serious: Yes (Other)
  Sender: FDA-Public Use
  Company Number: US-PFIZER INC-2011091830

PATIENT
  Sex: Female
  Weight: 72.562 kg

DRUGS (3)
  1. ADVIL COLD AND SINUS [Suspect]
     Indication: HEADACHE
  2. ADVIL COLD AND SINUS [Suspect]
     Indication: NASAL CONGESTION
  3. ADVIL COLD AND SINUS [Suspect]
     Indication: SINUSITIS
     Dosage: UNK
     Route: 048
     Dates: start: 20110424

REACTIONS (2)
  - GENERALISED ERYTHEMA [None]
  - BURNING SENSATION [None]
